FAERS Safety Report 5789171-2 (Version None)
Quarter: 2008Q2

REPORT INFORMATION
  Report Type: 
  Country: None (occurrence: None)
  Receive Date: 20080626
  Receipt Date: 20071228
  Transmission Date: 20081010
  Serious: No
  Sender: FDA-Public Use
  Company Number: US-ASTRAZENECA-2008UW00073

PATIENT
  Age: 60 Year
  Sex: Female
  Weight: 78.5 kg

DRUGS (14)
  1. PULMICORT [Suspect]
     Indication: ASTHMA
     Route: 055
  2. JANUVIA [Concomitant]
  3. AMARYL [Concomitant]
  4. ARMOUR [Concomitant]
  5. NEXIUM [Concomitant]
  6. ZETIA [Concomitant]
  7. ARIMIDEX [Concomitant]
  8. SINGULAIR [Concomitant]
  9. ALLEGRA [Concomitant]
  10. FORADIL [Concomitant]
  11. PROVENTIL [Concomitant]
  12. FLONASE [Concomitant]
  13. METOCLOPRAMIDE [Concomitant]
  14. LIBRAX [Concomitant]

REACTIONS (1)
  - DIABETES MELLITUS [None]
